FAERS Safety Report 19613918 (Version 1)
Quarter: 2021Q3

REPORT INFORMATION
  Report Type: Spontaneous
  Country: US (occurrence: US)
  Receive Date: 20210727
  Receipt Date: 20210727
  Transmission Date: 20211014
  Serious: No
  Sender: FDA-Public Use
  Company Number: US-LEADINGPHARMA-US-2021LEASPO00237

PATIENT
  Sex: Female

DRUGS (1)
  1. LORAZEPAM TABLETS USP [Suspect]
     Active Substance: LORAZEPAM
     Indication: INSOMNIA
     Route: 048

REACTIONS (8)
  - Malaise [Unknown]
  - Diarrhoea [Unknown]
  - Throat irritation [Unknown]
  - Weight decreased [Unknown]
  - Dysgeusia [Unknown]
  - Product taste abnormal [Unknown]
  - Suspected product tampering [Unknown]
  - Off label use [Unknown]
